FAERS Safety Report 12243810 (Version 4)
Quarter: 2019Q1

REPORT INFORMATION
  Report Type: Report from Study
  Country: CA (occurrence: CA)
  Receive Date: 20160406
  Receipt Date: 20190108
  Transmission Date: 20190417
  Serious: Yes (Death, Hospitalization)
  Sender: FDA-Public Use
  Company Number: PHHY2016CA045017

PATIENT
  Age: 56 Year
  Sex: Male

DRUGS (3)
  1. SANDOSTATIN LAR DEPOT [Suspect]
     Active Substance: OCTREOTIDE ACETATE
     Indication: CARCINOID TUMOUR
     Dosage: 30 MG, QMO
     Route: 030
     Dates: start: 20181109
  2. SANDOSTATIN [Suspect]
     Active Substance: OCTREOTIDE ACETATE
     Indication: NEUROENDOCRINE TUMOUR
     Dosage: UNK, QD
     Route: 042
     Dates: start: 20150721, end: 20150722
  3. SANDOSTATIN [Suspect]
     Active Substance: OCTREOTIDE ACETATE
     Dosage: UNK, QD
     Route: 058
     Dates: start: 20150723, end: 20150725

REACTIONS (9)
  - Dehydration [Recovering/Resolving]
  - Diarrhoea [Unknown]
  - Injection site mass [Recovered/Resolved]
  - Weight decreased [Unknown]
  - Angina pectoris [Unknown]
  - Death [Fatal]
  - Insomnia [Unknown]
  - Skin discolouration [Unknown]
  - Rash macular [Unknown]

NARRATIVE: CASE EVENT DATE: 20150721
